FAERS Safety Report 5099155-8 (Version None)
Quarter: 2006Q3

REPORT INFORMATION
  Report Type: 
  Country: None (occurrence: None)
  Receive Date: 20060731
  Receipt Date: 20050916
  Transmission Date: 20061208
  Serious: Yes (Hospitalization, Other)
  Sender: FDA-Public Use
  Company Number: 217381

PATIENT
  Age: 74 Year
  Sex: Male

DRUGS (6)
  1. RITUXAN [Suspect]
     Indication: B-CELL LYMPHOMA
     Dosage: 375 MG/M2, X4; INTRAVENOUS
     Route: 042
     Dates: start: 20050604
  2. METOPROLOL TARTRATE [Concomitant]
  3. NITROGLYCERIN [Concomitant]
  4. QUINAPRIL [Concomitant]
  5. ASPIRIN [Concomitant]
  6. PLAVIX [Concomitant]

REACTIONS (2)
  - DIFFUSE ALVEOLAR DAMAGE [None]
  - PNEUMONIA [None]
